FAERS Safety Report 7595178-5 (Version None)
Quarter: 2011Q3

REPORT INFORMATION
  Report Type: 
  Country: None (occurrence: None)
  Receive Date: 20110707
  Receipt Date: 20110630
  Transmission Date: 20111222
  Serious: Yes (Other)
  Sender: FDA-Public Use
  Company Number: US-PFIZER INC-2011146679

PATIENT
  Age: 80 Year
  Sex: Female

DRUGS (12)
  1. ATORVASTATIN [Concomitant]
     Dosage: 20 MG, UNK
  2. RALOXIFENE [Concomitant]
     Dosage: 60 MG, UNK
  3. LOSARTAN [Concomitant]
     Dosage: 25 MG, UNK
  4. FLUTICASONE [Concomitant]
     Dosage: AS NEEDED
  5. AMIODARONE HCL [Suspect]
     Dosage: 200 MG, UNK
  6. DICLOFENAC [Concomitant]
     Dosage: AS NEEDED
  7. ASPIRIN [Concomitant]
     Dosage: 325 MG, UNK
  8. FUROSEMIDE [Concomitant]
     Dosage: 40 MG, 2X/DAY
  9. OMEPRAZOLE [Concomitant]
     Dosage: 20 MG, 2X/DAY
  10. SPIRONOLACTONE [Concomitant]
     Dosage: 25 MG,(1/2 TABLET)
  11. ACETAMINOPHEN [Concomitant]
     Dosage: AS NEEDED
  12. LORATADINE [Concomitant]
     Dosage: AS NEEDED

REACTIONS (1)
  - KERATOPATHY [None]
